FAERS Safety Report 8836123 (Version 2)
Quarter: 2012Q4

REPORT INFORMATION
  Report Type: 
  Country: AU (occurrence: AU)
  Receive Date: 20121011
  Receipt Date: 20121024
  Transmission Date: 20130627
  Serious: Yes (Hospitalization, Other)
  Sender: FDA-Public Use
  Company Number: PHHY2012AU089193

PATIENT
  Age: 85 Year
  Sex: Female

DRUGS (4)
  1. ACLASTA [Suspect]
     Dosage: 5 mg, UNK
     Route: 042
     Dates: start: 20100128
  2. THYROXINE [Concomitant]
     Dosage: 100 mcg/ daily
  3. ALEPAM [Concomitant]
     Dosage: 30 mg, 1/2 nocte prn
  4. NEXIUM [Concomitant]
     Dosage: 20 mg daily

REACTIONS (12)
  - Fall [Recovered/Resolved]
  - Road traffic accident [Recovered/Resolved]
  - Skull fractured base [Unknown]
  - Atelectasis [Unknown]
  - Craniocerebral injury [Unknown]
  - Ear haemorrhage [Unknown]
  - Loss of consciousness [Unknown]
  - Conductive deafness [Unknown]
  - Confusional state [Unknown]
  - Vertigo positional [Unknown]
  - Vomiting [Unknown]
  - Excoriation [Unknown]
